FAERS Safety Report 23758261 (Version 1)
Quarter: 2024Q2

REPORT INFORMATION
  Report Type: Spontaneous
  Country: DE (occurrence: DE)
  Receive Date: 20240418
  Receipt Date: 20240418
  Transmission Date: 20240716
  Serious: Yes (Other)
  Sender: FDA-Public Use
  Company Number: DE-EMBRYOTOX-202300594

PATIENT
  Age: 1 Day
  Sex: Male
  Weight: 2.4 kg

DRUGS (3)
  1. METOPROLOL [Suspect]
     Active Substance: METOPROLOL
     Indication: Hypertension
     Dosage: 50 [MG/D (50-0-0) ]/ SINCE 11/22,PAUSED APPROXIMATELY GW 9.1- GW 14.1
     Route: 064
  2. METHYLDOPA [Suspect]
     Active Substance: METHYLDOPA
     Indication: Hypertension
     Dosage: 1000 [MG/D ]/ SINCE 11/22 2 SEPARATED DOSES
     Route: 064
     Dates: start: 20221012, end: 20230718
  3. PERTUSSIS VACCINE [Concomitant]
     Active Substance: PERTUSSIS VACCINE
     Indication: Immunisation
     Dosage: 06/23
     Route: 064

REACTIONS (2)
  - Small for dates baby [Unknown]
  - Foetal exposure during pregnancy [Unknown]

NARRATIVE: CASE EVENT DATE: 20230701
